FAERS Safety Report 24037638 (Version 2)
Quarter: 2024Q3

REPORT INFORMATION
  Report Type: Spontaneous
  Country: US (occurrence: US)
  Receive Date: 20240702
  Receipt Date: 20240705
  Transmission Date: 20241017
  Serious: Yes (Other)
  Sender: Haleon PLC
  Company Number: US-HALEON-2184480

PATIENT
  Sex: Female

DRUGS (1)
  1. ADVIL PM (DIPHENHYDRAMINE HYDROCHLORIDE\IBUPROFEN) [Suspect]
     Active Substance: DIPHENHYDRAMINE HYDROCHLORIDE\IBUPROFEN
     Indication: Product used for unknown indication

REACTIONS (3)
  - Foreign body in throat [Unknown]
  - Product complaint [Unknown]
  - Vomiting [Unknown]
